FAERS Safety Report 8541255 (Version 5)
Quarter: 2012Q4

REPORT INFORMATION
  Report Type: 
  Country: IE (occurrence: IE)
  Receive Date: 20120502
  Receipt Date: 20120911
  Transmission Date: 20130627
  Serious: Yes (Hospitalization, Other)
  Sender: FDA-Public Use
  Company Number: PHFR2012IE002176

PATIENT
  Age: 57 Year
  Sex: Female

DRUGS (11)
  1. CLOZARIL [Suspect]
     Indication: SCHIZOPHRENIA
     Dosage: UNK
     Route: 048
     Dates: start: 20120322
  2. CLOZARIL [Suspect]
     Dosage: UNK
     Route: 048
     Dates: start: 20120417, end: 20120427
  3. CLOZARIL [Suspect]
     Dosage: 125 mg, daily
     Route: 048
     Dates: end: 20120501
  4. CLOZARIL [Suspect]
     Dosage: UNK
     Route: 048
     Dates: end: 20120509
  5. CLOZARIL [Suspect]
     Dosage: 200 mg, daily
     Route: 048
  6. PSYCHOTROPICS [Concomitant]
  7. VALPROATE SODIUM [Concomitant]
     Indication: MOOD ALTERED
     Dosage: 2000 mg, daily
     Route: 048
     Dates: start: 20120318
  8. PROMETHAZINE [Concomitant]
     Indication: HYPNOTHERAPY
     Dosage: 50 mg, UNK
     Route: 048
     Dates: start: 20120318, end: 20120408
  9. LAMOTRIGINE [Concomitant]
     Indication: MOOD ALTERED
     Dosage: 250 mg, daily
     Route: 048
     Dates: start: 20120318
  10. RISPERIDONE [Concomitant]
     Dosage: 4 mg, daily
     Route: 048
     Dates: start: 20120403, end: 20120408
  11. PARACETAMOL [Concomitant]
     Indication: ANALGESIC THERAPY
     Dosage: 1 g, PRN
     Route: 048
     Dates: start: 20120403

REACTIONS (8)
  - Neuroleptic malignant syndrome [Unknown]
  - Confusional state [Recovered/Resolved]
  - Pyrexia [Recovered/Resolved]
  - Urinary tract infection [Recovered/Resolved]
  - Ataxia [Recovered/Resolved]
  - Differential white blood cell count abnormal [Recovered/Resolved]
  - Monocyte count increased [Recovered/Resolved]
  - Haemoglobin decreased [Unknown]
